FAERS Safety Report 9116964 (Version 1)
Quarter: 2013Q1

REPORT INFORMATION
  Report Type: Spontaneous
  Country: US (occurrence: US)
  Receive Date: 20130225
  Receipt Date: 20130225
  Transmission Date: 20140127
  Serious: Yes (Life-Threatening, Hospitalization)
  Sender: FDA-Public Use
  Company Number: US-BAYER-2013-022304

PATIENT
  Age: 34 Year
  Sex: Female
  Weight: 116.55 kg

DRUGS (9)
  1. YASMIN [Suspect]
     Indication: CONTRACEPTION
  2. YASMIN [Suspect]
     Indication: PREMENSTRUAL SYNDROME
  3. OXYCODONE [Concomitant]
     Indication: BACK PAIN
     Dosage: 5 MG, ONE TABLET, QID
  4. PRILOSEC [Concomitant]
     Dosage: 20 MG, DAILY
  5. CELEBREX [Concomitant]
     Dosage: 200 MG, DAILY
  6. STOOL SOFTENER [Concomitant]
     Dosage: 1 A DAY
  7. OMEGA 3 [Concomitant]
     Dosage: 1 A DAY
  8. FLEXERIL [Concomitant]
     Indication: MUSCLE SPASMS
     Dosage: 1 TABLET, AS NEEDED
  9. BENICAR HCT [Concomitant]
     Dosage: ? TABLET DAILY

REACTIONS (2)
  - Pulmonary embolism [None]
  - Deep vein thrombosis [None]
